FAERS Safety Report 5971814-1 (Version None)
Quarter: 2008Q4

REPORT INFORMATION
  Report Type: 
  Country: None (occurrence: None)
  Receive Date: 20081125
  Receipt Date: 20081111
  Transmission Date: 20090506
  Serious: Yes (Other)
  Sender: FDA-Public Use
  Company Number: RENA-1000219

PATIENT
  Age: 55 Year
  Sex: Male

DRUGS (1)
  1. RENAGEL [Suspect]
     Indication: HYPERPHOSPHATAEMIA
     Dosage: 3.2 G, TID, ORAL, 2.4 G, BID, ORAL
     Route: 048
     Dates: start: 20080201, end: 20080101

REACTIONS (2)
  - LEG AMPUTATION [None]
  - PERIPHERAL VASCULAR DISORDER [None]
